FAERS Safety Report 9536143 (Version 1)
Quarter: 2013Q2

REPORT INFORMATION
  Report Type: Spontaneous
  Country: US (occurrence: None)
  Receive Date: 20130507
  Receipt Date: 20130507
  Transmission Date: 20140414
  Serious: No
  Sender: FDA-Public Use
  Company Number: PHEH2013US001862

PATIENT
  Age: 58 Year
  Sex: Male

DRUGS (5)
  1. AFINITOR (RAD) UNKNOWN [Suspect]
     Indication: NEOPLASM MALIGNANT
     Dosage: 20 MG, QD, ORAL
     Route: 048
  2. LORAZEPAM (NGX) (LORAZEPAM) UNKNOWN [Suspect]
  3. OXYCODONE (OXYCODONE) [Suspect]
  4. SENA (SENNOSIDE A+B) [Suspect]
  5. PROZAC (FLUOXETINE HYDROCHLORIDE) [Suspect]

REACTIONS (3)
  - Testicular pain [None]
  - Pain in extremity [None]
  - Arthralgia [None]
